FAERS Safety Report 4773537-3 (Version None)
Quarter: 2005Q3

REPORT INFORMATION
  Report Type: 
  Country: None (occurrence: None)
  Receive Date: 20050920
  Receipt Date: 20040917
  Transmission Date: 20060218
  Serious: No
  Sender: FDA-Public Use
  Company Number: US-BRISTOL-MYERS SQUIBB COMPANY-12705604

PATIENT
  Age: 61 Year
  Sex: Female
  Weight: 109 kg

DRUGS (2)
  1. BUSPAR [Suspect]
     Indication: DEPRESSION
     Route: 048
  2. HERBAL NERVE TONIC LIQUID [Concomitant]

REACTIONS (1)
  - HYPERSENSITIVITY [None]
